FAERS Safety Report 9343939 (Version 1)
Quarter: 2013Q2

REPORT INFORMATION
  Report Type: Spontaneous
  Country: TH (occurrence: TH)
  Receive Date: 20130612
  Receipt Date: 20130612
  Transmission Date: 20140414
  Serious: Yes (Hospitalization, Other)
  Sender: FDA-Public Use
  Company Number: TH-ROXANE LABORATORIES, INC.-2013-RO-00916RO

PATIENT
  Age: 51 Year
  Sex: Female

DRUGS (3)
  1. AZATHIOPRINE [Suspect]
     Indication: MYOSITIS
     Dosage: 50 MG
  2. METHOTREXATE [Suspect]
     Indication: MYOSITIS
  3. PREDNISOLONE [Suspect]
     Indication: MYOSITIS
     Dosage: 20 MG

REACTIONS (4)
  - Acute febrile neutrophilic dermatosis [Recovered/Resolved]
  - Pleural effusion [Unknown]
  - Nausea [Unknown]
  - Vomiting [Unknown]
